FAERS Safety Report 13165082 (Version 1)
Quarter: 2017Q1

REPORT INFORMATION
  Report Type: Spontaneous
  Country: US (occurrence: US)
  Receive Date: 20170130
  Receipt Date: 20170130
  Transmission Date: 20170428
  Serious: Yes (Other)
  Sender: FDA-Public Use
  Company Number: US-STI PHARMA LLC-1062535

PATIENT
  Sex: Female

DRUGS (1)
  1. ETHAMBUTOL HYDROCHLORIDE. [Suspect]
     Active Substance: ETHAMBUTOL HYDROCHLORIDE

REACTIONS (1)
  - Visual acuity reduced [Unknown]
